FAERS Safety Report 18524809 (Version 2)
Quarter: 2020Q4

REPORT INFORMATION
  Report Type: Report from Study
  Country: NL (occurrence: NL)
  Receive Date: 20201119
  Receipt Date: 20201202
  Transmission Date: 20210114
  Serious: Yes (Hospitalization, Other)
  Sender: FDA-Public Use
  Company Number: NL-PFIZER INC-2020452495

PATIENT
  Age: 50 Year
  Sex: Female

DRUGS (4)
  1. DAUNORUBICIN [Suspect]
     Active Substance: DAUNORUBICIN
     Indication: ACUTE MYELOID LEUKAEMIA
     Dosage: 96.6 MG, 1X/DAY
     Route: 065
     Dates: start: 20201013, end: 20201015
  2. CYTARABINE. [Suspect]
     Active Substance: CYTARABINE
     Indication: ACUTE MYELOID LEUKAEMIA
     Dosage: 3220 MG, 1X/DAY
     Route: 065
     Dates: start: 20201013, end: 20201018
  3. CYTARABINE. [Suspect]
     Active Substance: CYTARABINE
     Dosage: 1610 MG, 1X/DAY
     Route: 065
     Dates: start: 20201019, end: 20201019
  4. GILTERITINIB [Suspect]
     Active Substance: GILTERITINIB
     Indication: ACUTE MYELOID LEUKAEMIA
     Dosage: 120 MG, 1X/DAY
     Route: 065
     Dates: start: 20201020, end: 20201025

REACTIONS (2)
  - Sepsis [Not Recovered/Not Resolved]
  - Neutropenic colitis [Not Recovered/Not Resolved]

NARRATIVE: CASE EVENT DATE: 20201025
